FAERS Safety Report 23597398 (Version 1)
Quarter: 2024Q1

REPORT INFORMATION
  Report Type: Spontaneous
  Country: IT (occurrence: IT)
  Receive Date: 20240305
  Receipt Date: 20240305
  Transmission Date: 20240409
  Serious: Yes (Other)
  Sender: FDA-Public Use
  Company Number: None

PATIENT
  Age: 68 Year
  Sex: Male
  Weight: 67 kg

DRUGS (1)
  1. PANTOPRAZOLE [Suspect]
     Active Substance: PANTOPRAZOLE
     Indication: Prophylaxis against gastrointestinal ulcer
     Dosage: PANTOPRAZOLO, DURATION: 2 DAYS.
     Route: 048
     Dates: start: 20240111, end: 20240112

REACTIONS (1)
  - Submaxillary gland enlargement [Recovered/Resolved]

NARRATIVE: CASE EVENT DATE: 20240111
